FAERS Safety Report 17611453 (Version 2)
Quarter: 2020Q3

REPORT INFORMATION
  Report Type: Spontaneous
  Country: PR (occurrence: PR)
  Receive Date: 20200401
  Receipt Date: 20200930
  Transmission Date: 20201102
  Serious: Yes (Other)
  Sender: FDA-Public Use
  Company Number: PR-BAYER-2020-049775

PATIENT
  Age: 57 Year
  Sex: Male

DRUGS (4)
  1. REGORAFENIB. [Suspect]
     Active Substance: REGORAFENIB
     Indication: PROSTATE CANCER
     Dosage: 120 MG, QD
     Route: 048
     Dates: start: 20190405
  2. REGORAFENIB. [Suspect]
     Active Substance: REGORAFENIB
     Indication: PROSTATE CANCER
     Dosage: 160 MG, QD
     Route: 048
  3. REGORAFENIB. [Suspect]
     Active Substance: REGORAFENIB
     Indication: PROSTATE CANCER
     Dosage: 160 MG, QD
     Route: 048
  4. REGORAFENIB. [Suspect]
     Active Substance: REGORAFENIB
     Indication: GASTROINTESTINAL STROMAL TUMOUR
     Dosage: UNK
     Dates: start: 20200113

REACTIONS (6)
  - Hepatic enzyme increased [None]
  - Erectile dysfunction [None]
  - Pain [None]
  - Skin exfoliation [None]
  - Rectal haemorrhage [None]
  - Hepatic function abnormal [None]

NARRATIVE: CASE EVENT DATE: 20200528
